FAERS Safety Report 15772850 (Version 3)
Quarter: 2019Q4

REPORT INFORMATION
  Report Type: Spontaneous
  Country: IT (occurrence: IT)
  Receive Date: 20181228
  Receipt Date: 20191011
  Transmission Date: 20200122
  Serious: Yes (Other)
  Sender: FDA-Public Use
  Company Number: IT-SHIRE-IT201848760

PATIENT

DRUGS (6)
  1. ASPIRIN. [Suspect]
     Active Substance: ASPIRIN
     Indication: KAWASAKI^S DISEASE
     Dosage: UNK
     Route: 065
  2. PREDNISONE. [Suspect]
     Active Substance: PREDNISONE
     Indication: KAWASAKI^S DISEASE
     Dosage: UNK
     Route: 048
  3. METHYLPREDNISOLONE. [Suspect]
     Active Substance: METHYLPREDNISOLONE
     Indication: KAWASAKI^S DISEASE
     Dosage: UNK
     Route: 065
  4. ASPIRIN. [Suspect]
     Active Substance: ASPIRIN
     Dosage: 50 MILLIGRAM/KILOGRAM, QD (4 DIVIDED DOSES)
     Route: 048
  5. HUMAN NORMAL IMMUNOGLOBULIN [Suspect]
     Active Substance: HUMAN IMMUNOGLOBULIN G
     Indication: KAWASAKI^S DISEASE
     Dosage: 2 GRAM PER KILOGRAM
     Route: 042
  6. PREDNISONE. [Suspect]
     Active Substance: PREDNISONE
     Dosage: UNK
     Route: 048

REACTIONS (1)
  - Drug ineffective [Unknown]
